FAERS Safety Report 9167475 (Version 1)
Quarter: 2013Q1

REPORT INFORMATION
  Report Type: Spontaneous
  Country: US (occurrence: None)
  Receive Date: 20130301
  Receipt Date: 20130301
  Transmission Date: 20140127
  Serious: Yes (Other)
  Sender: FDA-Public Use
  Company Number: 1609790

PATIENT
  Sex: 0

DRUGS (1)
  1. LEVOPHED INJECTION NORADRENALINE (NOREPINEPHRINE) 1:1000 (NORADRENALINE TARTRATE) [Suspect]

REACTIONS (1)
  - Oedema [None]
